FAERS Safety Report 4994639-2 (Version None)
Quarter: 2006Q2

REPORT INFORMATION
  Report Type: 
  Country: None (occurrence: None)
  Receive Date: 20060505
  Receipt Date: 20050824
  Transmission Date: 20061013
  Serious: Yes (Hospitalization, Other)
  Sender: FDA-Public Use
  Company Number: US-MERCK-0508USA04244

PATIENT
  Age: 53 Year
  Sex: Female
  Weight: 100 kg

DRUGS (18)
  1. VIOXX [Suspect]
     Indication: ARTHRITIS
     Route: 048
     Dates: start: 20031101, end: 20040901
  2. PROTONIX [Concomitant]
     Route: 065
  3. REGLAN [Concomitant]
     Route: 065
  4. DIAZEPAM [Concomitant]
     Route: 065
  5. ATENOLOL [Concomitant]
     Route: 065
  6. IMDUR [Concomitant]
     Route: 065
  7. FUROSEMIDE [Concomitant]
     Route: 065
  8. CARISOPRODOL [Concomitant]
     Route: 065
  9. NIFEDIPINE [Concomitant]
     Route: 065
  10. QUININE [Concomitant]
     Route: 065
  11. ZOCOR [Concomitant]
     Route: 048
  12. RENAGEL [Concomitant]
     Route: 065
  13. VITAMINS (UNSPECIFIED) [Concomitant]
     Route: 065
  14. HYDROCODONE BITARTRATE [Concomitant]
     Route: 065
  15. MIRALAX [Concomitant]
     Route: 065
  16. [THERAPY UNSPECIFIED] [Concomitant]
     Route: 065
  17. GLUCOSAMINE [Concomitant]
     Route: 065
  18. HUMULIN [Concomitant]
     Route: 065

REACTIONS (9)
  - ACUTE MYOCARDIAL INFARCTION [None]
  - ACUTE PULMONARY OEDEMA [None]
  - ANAEMIA [None]
  - CARDIAC FAILURE CONGESTIVE [None]
  - CHRONIC OBSTRUCTIVE PULMONARY DISEASE [None]
  - CORONARY ARTERY DISEASE [None]
  - GASTROINTESTINAL HAEMORRHAGE [None]
  - MYOCARDIAL INFARCTION [None]
  - PNEUMONIA [None]
